FAERS Safety Report 8513989-6 (Version None)
Quarter: 2012Q3

REPORT INFORMATION
  Report Type: 
  Country: None (occurrence: None)
  Receive Date: 20120705
  Receipt Date: 20111024
  Transmission Date: 20120928
  Serious: Yes (Hospitalization, Other)
  Sender: FDA-Public Use
  Company Number: 2011SP050218

PATIENT
  Sex: Female

DRUGS (4)
  1. RIBAVIRIN [Suspect]
     Indication: HEPATITIS C
     Dates: start: 19990101
  2. RIBAVIRIN [Suspect]
     Indication: HEPATITIS C
     Dates: start: 20111022
  3. INTRON A [Suspect]
     Dates: start: 19990101
  4. INTRON A [Suspect]
     Dates: start: 20111022

REACTIONS (3)
  - MASS [None]
  - COMA [None]
  - DRUG INEFFECTIVE [None]
